FAERS Safety Report 9853886 (Version 5)
Quarter: 2015Q1

REPORT INFORMATION
  Report Type: Spontaneous
  Country: CN (occurrence: CN)
  Receive Date: 20140129
  Receipt Date: 20150105
  Transmission Date: 20150721
  Serious: Yes (Other)
  Sender: FDA-Public Use
  Company Number: CN-PFIZER INC-2013354265

PATIENT
  Age: 68 Year
  Sex: Male

DRUGS (6)
  1. AMIODARONE HCL [Interacting]
     Active Substance: AMIODARONE HYDROCHLORIDE
     Dosage: 0.4 G, 2X/DAY
     Dates: end: 20111123
  2. WARFARIN [Concomitant]
     Active Substance: WARFARIN
     Indication: ATRIAL FIBRILLATION
     Dosage: 5 MG, DAILY
  3. NIFEDIPINE. [Concomitant]
     Active Substance: NIFEDIPINE
     Indication: HYPERTENSION
     Dosage: UNK
  4. BISOPROLOL FUMARATE. [Concomitant]
     Active Substance: BISOPROLOL FUMARATE
     Indication: ATRIAL FIBRILLATION
     Dosage: 5 MG, 1X/DAY
  5. AMIODARONE HCL [Suspect]
     Active Substance: AMIODARONE HYDROCHLORIDE
     Indication: ATRIAL FIBRILLATION
     Dosage: 0.4 G, 3X/DAY
     Route: 065
     Dates: start: 20111112
  6. XUEZHIKANG [Interacting]
     Active Substance: RED YEAST
     Indication: ATRIAL FIBRILLATION
     Dosage: 0.6 G, 2X/DAY
     Route: 065
     Dates: start: 201111

REACTIONS (2)
  - Drug interaction [Unknown]
  - Liver injury [Recovered/Resolved]

NARRATIVE: CASE EVENT DATE: 20111129
